FAERS Safety Report 15503587 (Version 1)
Quarter: 2018Q4

REPORT INFORMATION
  Report Type: Spontaneous
  Country: US (occurrence: US)
  Receive Date: 20181009
  Receipt Date: 20181009
  Transmission Date: 20190205
  Serious: Yes (Hospitalization)
  Sender: FDA-Public Use
  Company Number: None

PATIENT
  Age: 59 Year
  Sex: Male

DRUGS (4)
  1. FLOMAX [Concomitant]
     Active Substance: TAMSULOSIN HYDROCHLORIDE
  2. TESTOPEL [Suspect]
     Active Substance: TESTOSTERONE
     Indication: TESTICULAR FAILURE
     Dosage: 900 MG EVERY 3 MONTHS SUBCUTANEOUS
     Route: 058
     Dates: start: 20171010
  3. VIAGRA [Concomitant]
     Active Substance: SILDENAFIL CITRATE
  4. LISINOPRIL/HCTZ [Concomitant]
     Active Substance: HYDROCHLOROTHIAZIDE\LISINOPRIL

REACTIONS (6)
  - Wound [None]
  - Clavicle fracture [None]
  - Road traffic accident [None]
  - Rib fracture [None]
  - Ligament sprain [None]
  - Traumatic lung injury [None]

NARRATIVE: CASE EVENT DATE: 20180927
